FAERS Safety Report 16769364 (Version 3)
Quarter: 2020Q3

REPORT INFORMATION
  Report Type: Spontaneous
  Country: US (occurrence: US)
  Receive Date: 20190903
  Receipt Date: 20200905
  Transmission Date: 20201102
  Serious: No
  Sender: FDA-Public Use
  Company Number: US-TEVA-2019-US-1100986

PATIENT
  Age: 61 Year
  Sex: Male

DRUGS (1)
  1. TADALAFIL. [Suspect]
     Active Substance: TADALAFIL
     Route: 065
     Dates: start: 20190816, end: 20190817

REACTIONS (7)
  - Nausea [Unknown]
  - Pain in extremity [Recovered/Resolved]
  - Headache [Unknown]
  - Dizziness [Unknown]
  - Back pain [Recovered/Resolved]
  - Sleep disorder [Unknown]
  - Arthralgia [Recovered/Resolved]

NARRATIVE: CASE EVENT DATE: 201908
